FAERS Safety Report 5710752-6 (Version None)
Quarter: 2008Q2

REPORT INFORMATION
  Report Type: 
  Country: None (occurrence: None)
  Receive Date: 20080421
  Receipt Date: 20080415
  Transmission Date: 20081010
  Serious: Yes (Hospitalization)
  Sender: FDA-Public Use
  Company Number: MX-ELI_LILLY_AND_COMPANY-MX200803000059

PATIENT
  Sex: Female
  Weight: 57 kg

DRUGS (6)
  1. PLACEBO [Suspect]
     Indication: BACK PAIN
     Dosage: 60 MG, UNK
     Route: 065
     Dates: start: 20070825, end: 20071227
  2. DULOXETINE HYDROCHLORIDE [Suspect]
     Indication: BACK PAIN
     Dosage: 60 MG, DAILY (1/D)
     Route: 048
     Dates: start: 20071228
  3. TRADOL [Concomitant]
     Dosage: 50 MG, UNKNOWN
     Route: 065
     Dates: start: 20080226
  4. DIAZEPAM [Concomitant]
     Dosage: 5 MG, UNKNOWN
     Route: 042
     Dates: start: 20080226, end: 20080226
  5. NUBAIN [Concomitant]
     Dosage: 5 MG, UNKNOWN
     Route: 042
     Dates: start: 20080226, end: 20080226
  6. ALIN [Concomitant]
     Dosage: 8 MG, UNKNOWN
     Route: 065
     Dates: start: 20080226

REACTIONS (1)
  - FIBROSIS [None]
